FAERS Safety Report 17916384 (Version 1)
Quarter: 2020Q2

REPORT INFORMATION
  Report Type: Spontaneous
  Country: SE (occurrence: SE)
  Receive Date: 20200619
  Receipt Date: 20200619
  Transmission Date: 20200714
  Serious: Yes (Other)
  Sender: FDA-Public Use
  Company Number: SE-009507513-2006SWE006001

PATIENT
  Age: 86 Year
  Sex: Female

DRUGS (5)
  1. FOLIC ACID. [Concomitant]
     Active Substance: FOLIC ACID
     Dosage: ^3 PER WEEK^
  2. METHOTREXATE. [Concomitant]
     Active Substance: METHOTREXATE
     Dosage: ^PER WEEK^
  3. ATENOLOL. [Concomitant]
     Active Substance: ATENOLOL
     Dosage: ^X 1^
  4. ALENDRONATE SODIUM. [Suspect]
     Active Substance: ALENDRONATE SODIUM
     Dosage: ^SINCE AT LEAST 2005^
  5. KALCIPOS D [Concomitant]
     Active Substance: CALCIUM CARBONATE\CHOLECALCIFEROL
     Dosage: ^2 X 1^

REACTIONS (2)
  - Jaw fracture [Not Recovered/Not Resolved]
  - Pathological fracture [Not Recovered/Not Resolved]

NARRATIVE: CASE EVENT DATE: 201906
